FAERS Safety Report 17711481 (Version 1)
Quarter: 2020Q2

REPORT INFORMATION
  Report Type: Spontaneous
  Country: US (occurrence: US)
  Receive Date: 20200427
  Receipt Date: 20200427
  Transmission Date: 20200714
  Serious: Yes (Death, Hospitalization)
  Sender: FDA-Public Use
  Company Number: NVSC2020US111718

PATIENT
  Age: 39 Year
  Sex: Male

DRUGS (1)
  1. CARBOPLATIN. [Suspect]
     Active Substance: CARBOPLATIN
     Indication: CHORIOCARCINOMA
     Dosage: UNK UNK, CYCLIC
     Route: 065
     Dates: start: 201906

REACTIONS (7)
  - Choriocarcinoma [Fatal]
  - Disseminated intravascular coagulation [Fatal]
  - Anaemia [Unknown]
  - Product use in unapproved indication [Unknown]
  - Acute respiratory failure [Fatal]
  - Thrombocytopenia [Fatal]
  - Metastatic choriocarcinoma [Fatal]
